FAERS Safety Report 9686068 (Version 2)
Quarter: 2013Q4

REPORT INFORMATION
  Report Type: Spontaneous
  Country: US (occurrence: US)
  Receive Date: 20131113
  Receipt Date: 20131113
  Transmission Date: 20140711
  Serious: No
  Sender: FDA-Public Use
  Company Number: US-ALLERGAN-1215232US

PATIENT
  Age: 77 Year
  Sex: Female

DRUGS (8)
  1. COMBIGAN[R] [Suspect]
     Indication: OCULAR ISCHAEMIC SYNDROME
     Dosage: 1 GTT, BID
     Route: 047
     Dates: start: 2011
  2. REFRESH LIQUIGEL [Concomitant]
     Indication: DRY EYE
     Dosage: 2 GTT, UNK
     Route: 047
  3. MICARDIS [Concomitant]
     Indication: HYPERTENSION
     Dosage: UNK UNK, QD
     Route: 048
     Dates: start: 2009
  4. ZOCOR [Concomitant]
     Indication: BLOOD CHOLESTEROL INCREASED
     Dosage: UNK UNK, QD
     Route: 048
     Dates: start: 2009
  5. SYNTHROID [Concomitant]
     Indication: HYPOTHYROIDISM
     Dosage: UNK
     Route: 048
     Dates: start: 2009
  6. ASA [Concomitant]
     Indication: CORONARY ARTERY DISEASE
     Dosage: UNK
     Route: 048
     Dates: start: 2009
  7. ADALAT [Concomitant]
     Indication: HYPERTENSION
     Dosage: UNK UNK, QD
     Route: 048
     Dates: start: 2009
  8. SOOTHE [Concomitant]
     Indication: DRY EYE
     Dosage: 2 GTT, UNK
     Route: 047

REACTIONS (4)
  - Dysarthria [Recovered/Resolved]
  - Feeling abnormal [Recovered/Resolved]
  - Off label use [Unknown]
  - Blood pressure decreased [Recovered/Resolved]
